FAERS Safety Report 14916759 (Version 4)
Quarter: 2018Q4

REPORT INFORMATION
  Report Type: Report from Study
  Country: JP (occurrence: JP)
  Receive Date: 20180520
  Receipt Date: 20181210
  Transmission Date: 20190204
  Serious: Yes (Death, Disabling, Other)
  Sender: FDA-Public Use
  Company Number: JP-009507513-1805JPN001654J

PATIENT
  Age: 65 Year
  Sex: Male
  Weight: 67 kg

DRUGS (12)
  1. CORTRIL [Concomitant]
     Active Substance: HYDROCORTISONE
     Indication: GENERAL PHYSICAL HEALTH DETERIORATION
     Dosage: 10 MILLIGRAM, QD
     Route: 048
     Dates: start: 20180309, end: 20180417
  2. LYRICA [Concomitant]
     Active Substance: PREGABALIN
     Indication: HYPOAESTHESIA
     Dosage: 75 MILLIGRAM, BID
     Route: 048
     Dates: start: 20180216, end: 20180417
  3. LIXIANA [Concomitant]
     Active Substance: EDOXABAN TOSYLATE
     Indication: PROPHYLAXIS
     Dosage: 30 MILLIGRAM, QD
     Route: 048
     Dates: start: 20180223, end: 20180417
  4. NAIXAN [Concomitant]
     Active Substance: NAPROXEN SODIUM
     Indication: FEELING HOT
     Dosage: UNK
     Route: 048
     Dates: start: 20180316, end: 20180417
  5. REBAMIPIDE [Concomitant]
     Active Substance: REBAMIPIDE
     Indication: PROPHYLAXIS
     Dosage: 100 MILLIGRAM, TID
     Route: 048
     Dates: end: 20180417
  6. OLMETEC [Concomitant]
     Active Substance: OLMESARTAN MEDOXOMIL
     Indication: BLOOD PRESSURE INCREASED
     Dosage: 5 MILLIGRAM, QD
     Route: 048
     Dates: end: 20180417
  7. MAGMITT [Concomitant]
     Active Substance: MAGNESIUM OXIDE
     Indication: CONSTIPATION
     Dosage: 500 MILLIGRAM, TID
     Route: 048
     Dates: end: 20180417
  8. TSUMURA RIKKUNSHITO EXTRACT GRANULES FOR ETHICAL USE [Concomitant]
     Active Substance: HERBALS
     Indication: DECREASED APPETITE
     Dosage: 2.5 GRAM, TID
     Route: 048
     Dates: start: 20180402, end: 20180417
  9. RISPERDAL [Concomitant]
     Active Substance: RISPERIDONE
     Indication: ANXIETY
     Dosage: 0.5 MILLILITER, QD
     Route: 048
     Dates: start: 20180408, end: 20180417
  10. KEYTRUDA [Suspect]
     Active Substance: PEMBROLIZUMAB
     Indication: TRANSITIONAL CELL CARCINOMA
     Dosage: 200 MILLIGRAM, Q3W
     Route: 041
     Dates: start: 20180126, end: 20180411
  11. SENNOSIDE [Concomitant]
     Active Substance: SENNOSIDES
     Indication: CONSTIPATION
     Dosage: 12 MILLIGRAM, BID
     Route: 048
     Dates: end: 20180417
  12. TAKECAB [Concomitant]
     Active Substance: VONOPRAZAN FUMURATE
     Indication: PROPHYLAXIS
     Dosage: 10 MILLIGRAM, QD
     Route: 048
     Dates: end: 20180417

REACTIONS (4)
  - Nausea [Not Recovered/Not Resolved]
  - Cancer pain [Not Recovered/Not Resolved]
  - Malignant neoplasm progression [Fatal]
  - Oedema peripheral [Not Recovered/Not Resolved]

NARRATIVE: CASE EVENT DATE: 201804
